FAERS Safety Report 11247552 (Version 1)
Quarter: 2015Q3

REPORT INFORMATION
  Report Type: Spontaneous
  Country: KZ (occurrence: None)
  Receive Date: 20150706
  Receipt Date: 20150706
  Transmission Date: 20151125
  Serious: Yes (Hospitalization, Other)
  Sender: FDA-Public Use
  Company Number: KZ2015GSK091882

PATIENT
  Age: 9 Year
  Sex: Male

DRUGS (4)
  1. ZIAGEN [Suspect]
     Active Substance: ABACAVIR SULFATE
     Indication: HIV INFECTION
     Dates: start: 20150113
  2. STOCRIN (EFAVIRENZ) [Suspect]
     Active Substance: EFAVIRENZ
     Indication: PRODUCT USED FOR UNKNOWN INDICATION
     Dates: end: 20150105
  3. ALUVIA (LOPINAVIR + RITONAVIR) [Suspect]
     Active Substance: LOPINAVIR\RITONAVIR
     Indication: HIV INFECTION
     Dates: start: 20150113
  4. EPIVIR [Suspect]
     Active Substance: LAMIVUDINE
     Indication: HIV INFECTION
     Dates: start: 20150113

REACTIONS (12)
  - Fatigue [None]
  - Mitral valve prolapse [None]
  - Developmental delay [None]
  - Dermatitis [None]
  - Aplastic anaemia [None]
  - Asthenia [None]
  - Lymphadenitis [None]
  - Hepatitis toxic [None]
  - Oropharyngeal candidiasis [None]
  - Odynophagia [None]
  - Hypotonia [None]
  - Agranulocytosis [None]
